FAERS Safety Report 8917539 (Version 7)
Quarter: 2013Q4

REPORT INFORMATION
  Report Type: Spontaneous
  Country: US (occurrence: US)
  Receive Date: 20121120
  Receipt Date: 20131001
  Transmission Date: 20140711
  Serious: Yes (Hospitalization, Other)
  Sender: FDA-Public Use
  Company Number: US-009507513-1204USA02429

PATIENT
  Sex: Female
  Weight: 102.49 kg

DRUGS (22)
  1. FOSAMAX [Suspect]
     Indication: OSTEOPENIA
     Dosage: 10 MG, QD
     Route: 048
     Dates: start: 19990130, end: 20000602
  2. ACTONEL [Suspect]
     Indication: OSTEOPENIA
     Dosage: 5 MG, QD
     Route: 048
     Dates: start: 20010213, end: 20010723
  3. ACTONEL [Suspect]
     Indication: OSTEOPOROSIS
     Dosage: 30 MG, QW
     Route: 048
     Dates: start: 20011030, end: 20020530
  4. ACTONEL [Suspect]
     Dosage: 35 MG, QW
     Route: 048
     Dates: start: 20020814, end: 20021130
  5. ACTONEL [Suspect]
     Dosage: 30 MG, UNK
     Route: 048
     Dates: start: 20030130, end: 20040120
  6. ACTONEL [Suspect]
     Dosage: 35 MG, UNK
     Route: 048
     Dates: start: 20040604, end: 20090904
  7. ACTONEL [Suspect]
     Dosage: 150 MG, UNK
     Route: 048
     Dates: start: 20120503, end: 20120709
  8. CORTICOSTEROIDS (UNSPECIFIED) [Concomitant]
     Dosage: UNK
     Dates: start: 1997, end: 2009
  9. PREDNISONE [Concomitant]
     Indication: SYSTEMIC LUPUS ERYTHEMATOSUS
     Dosage: 1-40 MG
  10. PREDNISONE [Concomitant]
     Indication: ARTHRITIS
  11. METHOTREXATE [Concomitant]
     Indication: SYSTEMIC LUPUS ERYTHEMATOSUS
     Dosage: 10-15 QW
     Route: 048
  12. METHOTREXATE [Concomitant]
     Indication: ARTHRITIS
  13. FOLIC ACID [Concomitant]
     Indication: SYSTEMIC LUPUS ERYTHEMATOSUS
     Dosage: 1-2 MG
     Route: 048
  14. FOLIC ACID [Concomitant]
     Indication: ARTHRITIS
  15. PLAQUENIL [Concomitant]
     Indication: SYSTEMIC LUPUS ERYTHEMATOSUS
     Dosage: 200 MG, BID
     Route: 048
  16. PLAQUENIL [Concomitant]
     Indication: ARTHRITIS
  17. ACCUPRIL [Concomitant]
     Indication: HYPERTENSION
     Dosage: 20 MG, QD
     Route: 048
  18. ZESTRIL [Concomitant]
     Indication: HYPERTENSION
     Dosage: 5-20 MG
     Route: 048
  19. PLENDIL [Concomitant]
     Indication: HYPERTENSION
  20. CORZIDE TABLETS [Concomitant]
     Indication: HYPERTENSION
  21. ZIAC [Concomitant]
     Indication: HYPERTENSION
     Dosage: 10 MG, QD
  22. FLONASE [Concomitant]
     Indication: RHINITIS
     Dosage: UNK, QD
     Route: 045

REACTIONS (131)
  - Atypical femur fracture [Unknown]
  - Femoral neck fracture [Unknown]
  - Open reduction of fracture [Unknown]
  - Femur fracture [Unknown]
  - Medical device removal [Unknown]
  - Intramedullary rod insertion [Unknown]
  - Anaemia [Unknown]
  - Surgery [Unknown]
  - Medical device removal [Unknown]
  - Haematoma evacuation [Unknown]
  - Femur fracture [Unknown]
  - Internal fixation of fracture [Unknown]
  - Intramedullary rod insertion [Unknown]
  - Parathyroidectomy [Unknown]
  - Tumour excision [Unknown]
  - Bone graft [Unknown]
  - Open reduction of fracture [Unknown]
  - Biopsy bladder [Unknown]
  - Fracture delayed union [Unknown]
  - Internal fixation of fracture [Unknown]
  - Fracture delayed union [Unknown]
  - Hip arthroplasty [Unknown]
  - Fracture delayed union [Unknown]
  - Open reduction of fracture [Unknown]
  - Device failure [Unknown]
  - Knee arthroplasty [Unknown]
  - Femur fracture [Unknown]
  - Ovarian cystectomy [Unknown]
  - Fracture reduction [Unknown]
  - Bladder cancer [Unknown]
  - Chest pain [Recovering/Resolving]
  - Arthroscopy [Unknown]
  - Bone graft [Unknown]
  - Intramedullary rod insertion [Unknown]
  - Medical device removal [Unknown]
  - Low turnover osteopathy [Unknown]
  - Anxiety [Recovered/Resolved]
  - Frustration [Recovered/Resolved]
  - Anger [Recovered/Resolved]
  - Depression [Recovered/Resolved]
  - Laceration [Unknown]
  - Foot fracture [Unknown]
  - Hyperparathyroidism [Unknown]
  - Type 2 diabetes mellitus [Unknown]
  - Adverse event [Unknown]
  - Vitamin D deficiency [Unknown]
  - Bursitis [Unknown]
  - Hypercalcaemia [Unknown]
  - Hyperthyroidism [Unknown]
  - Dry eye [Unknown]
  - Oedema [Recovering/Resolving]
  - Incorrect drug administration duration [Unknown]
  - Bone contusion [Unknown]
  - Depression [Unknown]
  - Fatigue [Unknown]
  - Dysuria [Unknown]
  - Bladder discomfort [Unknown]
  - Fibromyalgia [Unknown]
  - Anxiety [Unknown]
  - Sleep disorder [Unknown]
  - Antinuclear antibody positive [Unknown]
  - Intervertebral disc protrusion [Unknown]
  - Chest pain [Unknown]
  - Ecchymosis [Unknown]
  - Increased tendency to bruise [Unknown]
  - Nodal osteoarthritis [Unknown]
  - Raynaud^s phenomenon [Unknown]
  - Intervertebral disc degeneration [Unknown]
  - Spondyloarthropathy [Unknown]
  - Hyperglycaemia [Unknown]
  - Lichenification [Unknown]
  - Weight decreased [Unknown]
  - Productive cough [Unknown]
  - Fall [Unknown]
  - Foot fracture [Unknown]
  - Urinary tract infection [Unknown]
  - Asthma [Unknown]
  - Bladder neoplasm [Unknown]
  - Meniscus injury [Unknown]
  - Fall [Unknown]
  - Carpal tunnel syndrome [Unknown]
  - Bruxism [Unknown]
  - Metabolic syndrome [Unknown]
  - Dry mouth [Unknown]
  - Syncope [Recovered/Resolved]
  - Pain [Unknown]
  - Gastric disorder [Unknown]
  - Exostosis [Unknown]
  - Pyelonephritis [Unknown]
  - Salivary gland neoplasm [Unknown]
  - Fall [Unknown]
  - Device failure [Unknown]
  - Incision site haematoma [Unknown]
  - Device failure [Unknown]
  - Fracture delayed union [Unknown]
  - Osteoarthritis [Unknown]
  - Ulcer [Unknown]
  - Bladder pain [Unknown]
  - Cystitis interstitial [Not Recovered/Not Resolved]
  - Rotator cuff syndrome [Unknown]
  - Restless legs syndrome [Unknown]
  - Feeling hot [Unknown]
  - Feeling cold [Unknown]
  - Sinus disorder [Unknown]
  - Sleep apnoea syndrome [Unknown]
  - Vitamin B12 deficiency [Unknown]
  - Fall [Unknown]
  - Pain [Not Recovered/Not Resolved]
  - Haematocrit decreased [Recovering/Resolving]
  - Haematoma [Recovering/Resolving]
  - Fibromyalgia [Unknown]
  - Asthenia [Unknown]
  - Constipation [Unknown]
  - Arthralgia [Unknown]
  - Arthralgia [Unknown]
  - Rash [Unknown]
  - Therapeutic response decreased [Unknown]
  - Arthralgia [Unknown]
  - Headache [Unknown]
  - Dizziness [Unknown]
  - Alopecia [Unknown]
  - Muscle spasms [Unknown]
  - Arthralgia [Unknown]
  - Oedema peripheral [Unknown]
  - Back pain [Not Recovered/Not Resolved]
  - Dysphagia [Unknown]
  - Epigastric discomfort [Unknown]
  - Nausea [Not Recovered/Not Resolved]
  - Hypersensitivity [Unknown]
  - Back pain [Not Recovered/Not Resolved]
  - Headache [Unknown]
